FAERS Safety Report 8295458-4 (Version None)
Quarter: 2012Q2

REPORT INFORMATION
  Report Type: 
  Country: None (occurrence: None)
  Receive Date: 20120418
  Receipt Date: 20120413
  Transmission Date: 20120825
  Serious: Yes (Other)
  Sender: FDA-Public Use
  Company Number: NL-PFIZER INC-2012093935

PATIENT
  Sex: Male
  Weight: 40 kg

DRUGS (3)
  1. FUROSEMIDE [Suspect]
     Indication: BLOOD PRESSURE
     Dosage: 0.5 MG/KG/D
     Route: 042
  2. HYDROCHLOROTHIAZIDE [Suspect]
     Indication: BLOOD PRESSURE
     Dosage: 2 MG/KG BODYWEIGHT, UNK
     Route: 048
  3. MISOPROSTOL [Suspect]
     Dosage: 400 MG, UNK
     Route: 048

REACTIONS (2)
  - RENAL FAILURE CHRONIC [None]
  - DRUG INEFFECTIVE [None]
